FAERS Safety Report 23812037 (Version 1)
Quarter: 2024Q2

REPORT INFORMATION
  Report Type: Spontaneous
  Country: IT (occurrence: FR)
  Receive Date: 20240503
  Receipt Date: 20240503
  Transmission Date: 20240715
  Serious: Yes (Other)
  Sender: FDA-Public Use
  Company Number: IT-AMGEN-FRASP2024082881

PATIENT
  Age: 47 Year
  Sex: Female

DRUGS (1)
  1. PROLIA [Suspect]
     Active Substance: DENOSUMAB
     Indication: Osteoporosis postmenopausal
     Dosage: 60 MILLIGRAM, Q6MO
     Route: 065

REACTIONS (13)
  - Hyperthyroidism [Unknown]
  - Toxic nodular goitre [Unknown]
  - Injection site erythema [Unknown]
  - Erythema [Unknown]
  - Bone loss [Unknown]
  - Tachycardia [Unknown]
  - Restlessness [Recovered/Resolved]
  - C-telopeptide increased [Unknown]
  - Blood alkaline phosphatase increased [Unknown]
  - Frequent bowel movements [Unknown]
  - Weight decreased [Unknown]
  - Hypertension [Unknown]
  - Palpitations [Recovered/Resolved]
